FAERS Safety Report 24008228 (Version 1)
Quarter: 2024Q2

REPORT INFORMATION
  Report Type: Spontaneous
  Country: US (occurrence: US)
  Receive Date: 20240625
  Receipt Date: 20240625
  Transmission Date: 20240716
  Serious: Yes (Other)
  Sender: FDA-Public Use
  Company Number: US-BRISTOL-MYERS SQUIBB COMPANY-2024-100286

PATIENT
  Age: 74 Year
  Sex: Female

DRUGS (2)
  1. ORENCIA [Suspect]
     Active Substance: ABATACEPT
     Indication: Product used for unknown indication
     Dosage: DOSE: 125MG/ML.?INJECT 125MG (1 SYRINGE) SUBCUTANEOUSLY ONCE A WEEK?4-PFS
     Route: 058
  2. PREDNISONE [Suspect]
     Active Substance: PREDNISONE
     Indication: Product used for unknown indication

REACTIONS (5)
  - Glycosylated haemoglobin increased [Unknown]
  - Neuralgia [Unknown]
  - Sciatica [Unknown]
  - Arthropathy [Unknown]
  - Arthralgia [Unknown]
